APPROVED DRUG PRODUCT: MEPERIDINE HYDROCHLORIDE
Active Ingredient: MEPERIDINE HYDROCHLORIDE
Strength: 100MG/ML
Dosage Form/Route: INJECTABLE;INJECTION
Application: A080445 | Product #004 | TE Code: AP
Applicant: WEST-WARD PHARMACEUTICALS INTERNATIONAL LTD
Approved: Approved Prior to Jan 1, 1982 | RLD: No | RS: No | Type: RX